FAERS Safety Report 16168362 (Version 1)
Quarter: 2019Q2

REPORT INFORMATION
  Report Type: Spontaneous
  Country: FR (occurrence: FR)
  Receive Date: 20190408
  Receipt Date: 20190408
  Transmission Date: 20190711
  Serious: Yes (Other)
  Sender: FDA-Public Use
  Company Number: FR-PROVELL PHARMACEUTICALS-2065443

PATIENT
  Sex: Male

DRUGS (4)
  1. EUTHYROX [Suspect]
     Active Substance: LEVOTHYROXINE SODIUM
     Indication: PRODUCT USED FOR UNKNOWN INDICATION
  2. BIPRETERAX [Concomitant]
     Active Substance: INDAPAMIDE\PERINDOPRIL
  3. EUTHYROX [Suspect]
     Active Substance: LEVOTHYROXINE SODIUM
  4. STAGID [Suspect]
     Active Substance: METFORMIN PAMOATE

REACTIONS (7)
  - Blister infected [None]
  - Seborrhoeic dermatitis [None]
  - Skin necrosis [None]
  - Skin ulcer [None]
  - Alopecia [None]
  - Gait inability [None]
  - Blood thyroid stimulating hormone increased [None]
